FAERS Safety Report 4341060-6 (Version None)
Quarter: 2004Q2

REPORT INFORMATION
  Report Type: 
  Country: None (occurrence: None)
  Receive Date: 20040419
  Receipt Date: 20040407
  Transmission Date: 20050107
  Serious: Yes (Other)
  Sender: FDA-Public Use
  Company Number: GB-MERCK-0404USA01578

PATIENT
  Sex: Male

DRUGS (1)
  1. MUSTARGEN [Suspect]
     Indication: MYCOSIS FUNGOIDES
     Route: 065

REACTIONS (1)
  - MYCOSIS FUNGOIDES [None]
